FAERS Safety Report 25659623 (Version 2)
Quarter: 2025Q3

REPORT INFORMATION
  Report Type: Spontaneous
  Country: SA (occurrence: SA)
  Receive Date: 20250808
  Receipt Date: 20250813
  Transmission Date: 20251020
  Serious: No
  Sender: PFIZER
  Company Number: SA-PFIZER INC-PV202500095230

PATIENT
  Age: 33 Year
  Sex: Male

DRUGS (4)
  1. ADALIMUMAB [Suspect]
     Active Substance: ADALIMUMAB
     Indication: Psoriasis
     Dates: start: 2020
  2. ADALIMUMAB [Suspect]
     Active Substance: ADALIMUMAB
  3. ENTECAVIR [Concomitant]
     Active Substance: ENTECAVIR
     Dosage: 0.5 MG, DAILY
     Route: 048
  4. CALCIPOTRIENE 0,005% AND BETAMETHASONE DIPROPIONATE 0,064% [Concomitant]
     Route: 061

REACTIONS (2)
  - Off label use [Unknown]
  - Drug effective for unapproved indication [Unknown]
